FAERS Safety Report 5140178-8 (Version None)
Quarter: 2006Q4

REPORT INFORMATION
  Report Type: 
  Country: None (occurrence: None)
  Receive Date: 20061031
  Receipt Date: 20061020
  Transmission Date: 20070319
  Serious: Yes (Hospitalization)
  Sender: FDA-Public Use
  Company Number: FR-BRISTOL-MYERS SQUIBB COMPANY-13558689

PATIENT
  Age: 62 Year
  Sex: Female

DRUGS (6)
  1. ENDOXAN [Suspect]
     Indication: B-CELL LYMPHOMA
     Route: 042
     Dates: start: 20060815, end: 20060815
  2. VEPESID [Suspect]
     Indication: B-CELL LYMPHOMA
     Route: 042
     Dates: start: 20060815, end: 20060815
  3. ZANTAC [Concomitant]
     Indication: PREMEDICATION
     Route: 042
     Dates: start: 20060815
  4. METHYLPREDNISOLONE 4MG TAB [Concomitant]
     Indication: PREMEDICATION
     Route: 042
     Dates: start: 20060815
  5. ZOFRAN [Concomitant]
     Indication: PREMEDICATION
     Route: 042
     Dates: start: 20060815
  6. MESNA [Concomitant]
     Dates: start: 20060815, end: 20060815

REACTIONS (3)
  - HEADACHE [None]
  - NAUSEA [None]
  - VOMITING [None]
